FAERS Safety Report 10016623 (Version 1)
Quarter: 2014Q1

REPORT INFORMATION
  Report Type: Spontaneous
  Country: US (occurrence: US)
  Receive Date: 20140317
  Receipt Date: 20140317
  Transmission Date: 20141002
  Serious: No
  Sender: FDA-Public Use
  Company Number: US-ALLERGAN-1319399US

PATIENT
  Age: 40 Year
  Sex: Female

DRUGS (3)
  1. LASTACAFT [Suspect]
     Indication: CONJUNCTIVITIS VIRAL
     Dosage: 2 GTT, QAM
     Route: 047
  2. LASTACAFT [Suspect]
     Dosage: 2 GTT, QAM
     Route: 047
  3. FML FORTE [Suspect]
     Indication: CONJUNCTIVITIS VIRAL
     Dosage: 2 GTT, QID
     Route: 047
     Dates: start: 201311

REACTIONS (2)
  - Off label use [Unknown]
  - Eye irritation [Recovered/Resolved]
